FAERS Safety Report 4513108-7 (Version None)
Quarter: 2004Q4

REPORT INFORMATION
  Report Type: 
  Country: None (occurrence: None)
  Receive Date: 20040928
  Receipt Date: 20040630
  Transmission Date: 20050328
  Serious: No
  Sender: FDA-Public Use
  Company Number: 04P-163-0265390-00

PATIENT
  Age: 64 Year
  Sex: Female

DRUGS (9)
  1. HUMIRA [Suspect]
     Indication: RHEUMATOID ARTHRITIS
     Dosage: 40 M G, 1 IN 4 WK, SUBCUTANEOUS
     Route: 058
     Dates: start: 20040101
  2. RALOXIFENE HCL [Concomitant]
  3. DILTIAZEM [Concomitant]
  4. FEXOFENADINE HYDROCHLORIDE [Concomitant]
  5. ISONIAZID [Concomitant]
  6. IBUPROFEN [Concomitant]
  7. PREDNISONE [Concomitant]
  8. POTASSIUM [Concomitant]
  9. FUROSEMIDE [Concomitant]

REACTIONS (1)
  - PERSONALITY CHANGE [None]
